FAERS Safety Report 6530843-X (Version None)
Quarter: 2010Q1

REPORT INFORMATION
  Report Type: 
  Country: None (occurrence: None)
  Receive Date: 20100108
  Receipt Date: 20090401
  Transmission Date: 20100710
  Serious: No
  Sender: FDA-Public Use
  Company Number: A0776618A

PATIENT
  Sex: Male

DRUGS (2)
  1. LOVAZA [Suspect]
     Dosage: 200MG TWICE PER DAY
     Route: 048
  2. UNKNOWN [Concomitant]

REACTIONS (2)
  - FOREIGN BODY [None]
  - OROPHARYNGEAL DISCOMFORT [None]
